FAERS Safety Report 9660532 (Version 2)
Quarter: 2013Q4

REPORT INFORMATION
  Report Type: Spontaneous
  Country: US (occurrence: US)
  Receive Date: 20131031
  Receipt Date: 20131105
  Transmission Date: 20140711
  Serious: Yes (Other)
  Sender: FDA-Public Use
  Company Number: US-TEVA-441040USA

PATIENT
  Age: 68 Year
  Sex: Female

DRUGS (1)
  1. COPAXONE [Suspect]
     Indication: MULTIPLE SCLEROSIS
     Dates: start: 20100225

REACTIONS (17)
  - Multiple sclerosis [Recovering/Resolving]
  - Band sensation [Recovering/Resolving]
  - Hypothyroidism [Recovering/Resolving]
  - Muscle spasticity [Recovering/Resolving]
  - Photopsia [Recovering/Resolving]
  - Local swelling [Recovering/Resolving]
  - Joint swelling [Recovering/Resolving]
  - Memory impairment [Recovering/Resolving]
  - Stress [Recovering/Resolving]
  - Sleep disorder [Recovering/Resolving]
  - Functional gastrointestinal disorder [Recovering/Resolving]
  - Bladder disorder [Recovering/Resolving]
  - Feeling cold [Recovering/Resolving]
  - Hair texture abnormal [Recovering/Resolving]
  - Tremor [Recovering/Resolving]
  - Body height decreased [Recovering/Resolving]
  - Balance disorder [Recovering/Resolving]
